FAERS Safety Report 18365590 (Version 2)
Quarter: 2020Q4

REPORT INFORMATION
  Report Type: Spontaneous
  Country: US (occurrence: US)
  Receive Date: 20201009
  Receipt Date: 20201023
  Transmission Date: 20210114
  Serious: No
  Sender: FDA-Public Use
  Company Number: US-SUNOVION-2020SUN002860

PATIENT
  Sex: Male

DRUGS (2)
  1. KYNMOBI [Suspect]
     Active Substance: APOMORPHINE HYDROCHLORIDE
     Dosage: 10 MG
     Route: 060
     Dates: start: 20200925
  2. KYNMOBI [Suspect]
     Active Substance: APOMORPHINE HYDROCHLORIDE
     Indication: PARKINSON^S DISEASE
     Dosage: 10 MG, SINGLE
     Route: 060
     Dates: start: 20200929, end: 20200929

REACTIONS (9)
  - Nausea [Unknown]
  - Vomiting [Recovered/Resolved]
  - Fall [Recovered/Resolved]
  - Presyncope [Recovered/Resolved]
  - Malaise [Unknown]
  - Swollen tongue [Unknown]
  - Lip swelling [Recovered/Resolved]
  - Dysstasia [Unknown]
  - Hypersomnia [Recovered/Resolved]
